FAERS Safety Report 5053494-5 (Version None)
Quarter: 2006Q3

REPORT INFORMATION
  Report Type: 
  Country: None (occurrence: None)
  Receive Date: 20060718
  Receipt Date: 20060704
  Transmission Date: 20061208
  Serious: Yes (Hospitalization)
  Sender: FDA-Public Use
  Company Number: DE-SANOFI-SYNTHELABO-A04200600700

PATIENT
  Age: 75 Year
  Sex: Male

DRUGS (4)
  1. ASPIRIN [Suspect]
     Indication: ARTERIAL STENT INSERTION
     Dosage: UNK
     Route: 065
  2. CLOPIDOGREL [Suspect]
     Indication: ARTERIAL STENT INSERTION
     Dosage: UNK
     Route: 048
  3. CLOPIDOGREL [Suspect]
     Dosage: UNK
     Route: 048
  4. HEPARIN SODIUM INJECTION [Suspect]
     Route: 042

REACTIONS (5)
  - DEEP VEIN THROMBOSIS [None]
  - INFARCTION [None]
  - MUSCLE HAEMORRHAGE [None]
  - NUCLEAR MAGNETIC RESONANCE IMAGING BRAIN ABNORMAL [None]
  - STENT OCCLUSION [None]
